FAERS Safety Report 7334857-1 (Version None)
Quarter: 2011Q1

REPORT INFORMATION
  Report Type: 
  Country: None (occurrence: None)
  Receive Date: 20110307
  Receipt Date: 20110223
  Transmission Date: 20110831
  Serious: Yes (Other)
  Sender: FDA-Public Use
  Company Number: TR-ROXANE LABORATORIES, INC.-2011-DE-01308GD

PATIENT
  Age: 62 Year
  Sex: Male

DRUGS (2)
  1. SERTRALINE [Suspect]
     Dosage: 50 MG
  2. INSULIN [Concomitant]
     Indication: DIABETES MELLITUS

REACTIONS (3)
  - MALAISE [None]
  - PAIN [None]
  - ECCHYMOSIS [None]
